FAERS Safety Report 10423644 (Version 4)
Quarter: 2014Q4

REPORT INFORMATION
  Report Type: Spontaneous
  Country: US (occurrence: US)
  Receive Date: 20140902
  Receipt Date: 20141023
  Transmission Date: 20150528
  Serious: Yes (Hospitalization)
  Sender: FDA-Public Use
  Company Number: US-JNJFOC-20140824918

PATIENT
  Age: 75 Year
  Sex: Male
  Weight: 75.98 kg

DRUGS (2)
  1. XARELTO [Suspect]
     Active Substance: RIVAROXABAN
     Indication: ATRIAL FIBRILLATION
     Route: 048
     Dates: start: 20131129, end: 2014
  2. XARELTO [Suspect]
     Active Substance: RIVAROXABAN
     Indication: CEREBROVASCULAR ACCIDENT PROPHYLAXIS
     Route: 048
     Dates: start: 20131129, end: 2014

REACTIONS (10)
  - Haematoma [Unknown]
  - Scrotal swelling [Unknown]
  - Gastrointestinal haemorrhage [Recovered/Resolved]
  - Total cholesterol/HDL ratio decreased [Unknown]
  - Haemoglobin decreased [Recovering/Resolving]
  - Haemothorax [Unknown]
  - Constipation [Unknown]
  - Abdominal pain [Unknown]
  - Polypectomy [Unknown]
  - Blood cholesterol decreased [Unknown]

NARRATIVE: CASE EVENT DATE: 2014
